FAERS Safety Report 15941612 (Version 1)
Quarter: 2019Q1

REPORT INFORMATION
  Report Type: Spontaneous
  Country: US (occurrence: US)
  Receive Date: 20190208
  Receipt Date: 20190208
  Transmission Date: 20190417
  Serious: Yes (Hospitalization)
  Sender: FDA-Public Use
  Company Number: None

PATIENT
  Age: 7 Year
  Sex: Male

DRUGS (10)
  1. PREVACID 15MG STB [Concomitant]
     Dates: start: 20181128
  2. PROAIR HFA [Concomitant]
     Active Substance: ALBUTEROL SULFATE
     Dates: start: 20181016
  3. MOTELUKAST 4MG CHEWABLES [Concomitant]
     Dates: start: 20181012
  4. FAMOTIDINE 40MG/5ML SUSPENSION [Concomitant]
     Dates: start: 20181217
  5. GENOTROPIN [Suspect]
     Active Substance: SOMATROPIN
     Indication: HYPOPITUITARISM
     Dosage: ?          OTHER FREQUENCY:EVERY OTHER DAY;?
     Route: 058
     Dates: start: 20130510
  6. ADVAIR HFA 115/21 [Concomitant]
     Dates: start: 20180111
  7. DICYCLOMINE 10MG/5ML SOLUTION [Concomitant]
     Dates: start: 20181231
  8. LEVOTHYROXINE 88MCG [Concomitant]
     Active Substance: LEVOTHYROXINE
     Dates: start: 20190206
  9. PROMETHAZINE 6.25MG/5ML SYRUP [Concomitant]
     Dates: start: 20181104
  10. GENOTROPIN [Suspect]
     Active Substance: SOMATROPIN
     Indication: HYPOPITUITARISM
     Dosage: ?          OTHER FREQUENCY:EVERY OTHER DAY;?
     Route: 058
     Dates: start: 20130510

REACTIONS (1)
  - Therapy cessation [None]

NARRATIVE: CASE EVENT DATE: 20190121
